FAERS Safety Report 14533359 (Version 1)
Quarter: 2018Q1

REPORT INFORMATION
  Report Type: Spontaneous
  Country: US (occurrence: US)
  Receive Date: 20180215
  Receipt Date: 20180215
  Transmission Date: 20180509
  Serious: Yes (Hospitalization)
  Sender: FDA-Public Use
  Company Number: US-TEVA-816458USA

PATIENT
  Age: 61 Year
  Sex: Female

DRUGS (1)
  1. VERELAN [Suspect]
     Active Substance: VERAPAMIL HYDROCHLORIDE
     Route: 065

REACTIONS (1)
  - Schizophrenia [Unknown]
